FAERS Safety Report 17262579 (Version 1)
Quarter: 2020Q1

REPORT INFORMATION
  Report Type: Spontaneous
  Country: US (occurrence: US)
  Receive Date: 20200110
  Receipt Date: 20200110
  Transmission Date: 20200409
  Serious: Yes (Hospitalization)
  Sender: FDA-Public Use
  Company Number: None

PATIENT
  Age: 24 Year
  Sex: Male

DRUGS (10)
  1. PANCREASE MT [Concomitant]
     Active Substance: PANCRELIPASE
  2. PULMOZYME [Concomitant]
     Active Substance: DORNASE ALFA
  3. TOBRAMYCIN. [Concomitant]
     Active Substance: TOBRAMYCIN
  4. PROAIR HFA [Concomitant]
     Active Substance: ALBUTEROL SULFATE
  5. SYMDEKO [Suspect]
     Active Substance: IVACAFTOR\TEZACAFTOR
     Indication: CYSTIC FIBROSIS
     Dosage: ?          OTHER FREQUENCY:EVERY 12 HOURS;?
     Route: 048
  6. HYPER SAL [Concomitant]
     Active Substance: SODIUM CHLORIDE
  7. PREVACID [Concomitant]
     Active Substance: LANSOPRAZOLE
  8. ZITHROMAX [Concomitant]
     Active Substance: AZITHROMYCIN DIHYDRATE
  9. TOBRAMYCIN. [Suspect]
     Active Substance: TOBRAMYCIN
     Indication: CYSTIC FIBROSIS
     Route: 055
  10. ALBUTEROL. [Concomitant]
     Active Substance: ALBUTEROL

REACTIONS (2)
  - Infection [None]
  - Condition aggravated [None]

NARRATIVE: CASE EVENT DATE: 20200109
